FAERS Safety Report 8205189-4 (Version None)
Quarter: 2012Q1

REPORT INFORMATION
  Report Type: 
  Country: None (occurrence: None)
  Receive Date: 20120313
  Receipt Date: 20120306
  Transmission Date: 20120608
  Serious: Yes (Other)
  Sender: FDA-Public Use
  Company Number: US-TEVA-326655USA

PATIENT
  Sex: Female
  Weight: 80.812 kg

DRUGS (3)
  1. NUVIGIL [Suspect]
     Indication: NARCOLEPSY
     Dosage: 250 MILLIGRAM;
     Route: 048
     Dates: end: 20120305
  2. METOPROLOL SUCCINATE [Concomitant]
     Indication: HEART RATE INCREASED
     Dosage: 50 MILLIGRAM;
     Route: 048
  3. SERTRALINE HYDROCHLORIDE [Concomitant]
     Indication: DEPRESSION
     Dosage: 100 MILLIGRAM;
     Route: 048

REACTIONS (5)
  - VOMITING [None]
  - TREMOR [None]
  - ASTHENIA [None]
  - DIZZINESS [None]
  - NAUSEA [None]
